FAERS Safety Report 18940824 (Version 1)
Quarter: 2021Q1

REPORT INFORMATION
  Report Type: Spontaneous
  Country: US (occurrence: US)
  Receive Date: 20210224
  Receipt Date: 20210224
  Transmission Date: 20210420
  Serious: Yes (Other)
  Sender: FDA-Public Use
  Company Number: None

PATIENT
  Sex: Male

DRUGS (10)
  1. HYDRALAZINE [Concomitant]
     Active Substance: HYDRALAZINE HYDROCHLORIDE
  2. ATORVASTATIN [Concomitant]
     Active Substance: ATORVASTATIN
  3. COREG [Concomitant]
     Active Substance: CARVEDILOL
  4. KLONOPIN [Concomitant]
     Active Substance: CLONAZEPAM
  5. SINEMET [Concomitant]
     Active Substance: CARBIDOPA\LEVODOPA
  6. NOURIANZ [Suspect]
     Active Substance: ISTRADEFYLLINE
     Indication: PARKINSON^S DISEASE
     Dosage: ?          QUANTITY:90 DF DOSAGE FORM;?
     Route: 048
     Dates: start: 20201027, end: 202012
  7. PLAVIX [Concomitant]
     Active Substance: CLOPIDOGREL BISULFATE
  8. BRILINTA [Concomitant]
     Active Substance: TICAGRELOR
  9. FELODIPINE. [Concomitant]
     Active Substance: FELODIPINE
  10. ROPINIROLE. [Concomitant]
     Active Substance: ROPINIROLE

REACTIONS (1)
  - Hallucination [None]
